FAERS Safety Report 6010973-1 (Version None)
Quarter: 2008Q4

REPORT INFORMATION
  Report Type: 
  Country: None (occurrence: None)
  Receive Date: 20081218
  Receipt Date: 20081215
  Transmission Date: 20090506
  Serious: Yes (Other)
  Sender: FDA-Public Use
  Company Number: B0546643A

PATIENT
  Age: 51 Year
  Sex: Male

DRUGS (4)
  1. AUGMENTIN '125' [Suspect]
     Dosage: 2.4MG THREE TIMES PER DAY
     Route: 042
     Dates: start: 20081107, end: 20081115
  2. CIPROFLOXACINUM [Concomitant]
     Dosage: 500MG TWICE PER DAY
     Route: 042
     Dates: start: 20081107, end: 20081206
  3. ACETAMINOPHEN [Concomitant]
     Dosage: 1G PER DAY
     Route: 048
     Dates: start: 20081103, end: 20081206
  4. LANSOPRAZOLE [Concomitant]
     Dosage: 30MG PER DAY
     Route: 048
     Dates: start: 20081103, end: 20081206

REACTIONS (3)
  - HEPATIC ENZYME INCREASED [None]
  - OFF LABEL USE [None]
  - OVERDOSE [None]
